FAERS Safety Report 18123231 (Version 2)
Quarter: 2020Q4

REPORT INFORMATION
  Report Type: Report from Study
  Country: CA (occurrence: CA)
  Receive Date: 20200807
  Receipt Date: 20201007
  Transmission Date: 20210113
  Serious: Yes (Hospitalization, Other)
  Sender: FDA-Public Use
  Company Number: CA-JNJFOC-20200746570

PATIENT
  Age: 46 Year
  Sex: Male
  Weight: 89 kg

DRUGS (1)
  1. REMICADE [Suspect]
     Active Substance: INFLIXIMAB
     Indication: COLITIS ULCERATIVE
     Dosage: LAST INFUSION WAS 77
     Route: 042
     Dates: start: 20101124, end: 20200923

REACTIONS (5)
  - Haemorrhoids [Unknown]
  - Gastroenteritis salmonella [Recovered/Resolved]
  - Diarrhoea [Unknown]
  - General physical health deterioration [Unknown]
  - Haematochezia [Unknown]

NARRATIVE: CASE EVENT DATE: 20200710
